FAERS Safety Report 8426752-1 (Version None)
Quarter: 2012Q2

REPORT INFORMATION
  Report Type: 
  Country: None (occurrence: None)
  Receive Date: 20120611
  Receipt Date: 20120605
  Transmission Date: 20120825
  Serious: Yes (Other)
  Sender: FDA-Public Use
  Company Number: PHHY2012JP048151

PATIENT
  Age: 14 Year
  Sex: Male

DRUGS (5)
  1. CISPLATIN [Suspect]
     Indication: BONE SARCOMA
     Dosage: 167 MG, UNK
  2. DOXORUBICIN HCL [Suspect]
     Indication: BONE SARCOMA
     Dosage: 42 MG, UNK
  3. ETOPOSIDE [Suspect]
     Indication: BONE SARCOMA
     Dosage: 84 MG, UNK
  4. IFOSFAMIDE [Suspect]
     Indication: BONE SARCOMA
     Dosage: 4200 MG, UNK
  5. METHOTREXATE [Suspect]
     Indication: BONE SARCOMA
     Dosage: 28 MG, UNK

REACTIONS (4)
  - DYSPHAGIA [None]
  - NAUSEA [None]
  - VOMITING [None]
  - OESOPHAGEAL STENOSIS [None]
